FAERS Safety Report 13423584 (Version 1)
Quarter: 2017Q2

REPORT INFORMATION
  Report Type: Spontaneous
  Country: JP (occurrence: JP)
  Receive Date: 20170410
  Receipt Date: 20170410
  Transmission Date: 20170830
  Serious: Yes (Hospitalization, Other)
  Sender: FDA-Public Use
  Company Number: JP-PFIZER INC-2017146935

PATIENT
  Age: 83 Year
  Sex: Female
  Weight: 44 kg

DRUGS (4)
  1. NEUROTROPIN /06251301/ [Concomitant]
     Active Substance: ORYCTOLAGUS CUNICULUS SKIN
  2. LOXOPROFEN [Concomitant]
     Active Substance: LOXOPROFEN
  3. CLOPIDOGREL [Concomitant]
     Active Substance: CLOPIDOGREL BISULFATE
  4. LYRICA [Suspect]
     Active Substance: PREGABALIN
     Indication: SPINAL COLUMN STENOSIS
     Dosage: 25 MG, 2X/DAY
     Route: 048
     Dates: start: 20170323, end: 20170324

REACTIONS (5)
  - Injury [Unknown]
  - Blood creatine phosphokinase increased [Unknown]
  - Motor dysfunction [Unknown]
  - Dizziness [Not Recovered/Not Resolved]
  - Fall [Unknown]

NARRATIVE: CASE EVENT DATE: 20170323
